FAERS Safety Report 4450904-9 (Version None)
Quarter: 2004Q3

REPORT INFORMATION
  Report Type: 
  Country: None (occurrence: None)
  Receive Date: 20040916
  Receipt Date: 20020102
  Transmission Date: 20050211
  Serious: Yes (Other)
  Sender: FDA-Public Use
  Company Number: US-BRISTOL-MYERS SQUIBB COMPANY-11752094

PATIENT
  Sex: Female

DRUGS (7)
  1. STADOL [Suspect]
     Indication: PAIN
  2. STADOL [Suspect]
     Indication: MIGRAINE
     Route: 045
  3. CARISOPRODOL [Concomitant]
  4. HYDROCODONE + ACETAMINOPHEN [Concomitant]
  5. CEPHALEXIN [Concomitant]
  6. PROMETHAZINE [Concomitant]
  7. ACETAMINOPHEN W/ CODEINE [Concomitant]

REACTIONS (1)
  - DEPENDENCE [None]
